FAERS Safety Report 6807052-X (Version None)
Quarter: 2010Q2

REPORT INFORMATION
  Report Type: 
  Country: None (occurrence: None)
  Receive Date: 20100629
  Receipt Date: 20080708
  Transmission Date: 20101027
  Serious: No
  Sender: FDA-Public Use
  Company Number: US-PFIZER INC-2008046127

PATIENT
  Sex: Male
  Weight: 110.68 kg

DRUGS (8)
  1. XANAX [Suspect]
  2. DARVOCET [Concomitant]
  3. LOMOTIL [Concomitant]
  4. ZANTAC [Concomitant]
  5. CIALIS [Concomitant]
  6. ZOCOR [Concomitant]
  7. LISINOPRIL [Concomitant]
  8. ETANERCEPT [Concomitant]

REACTIONS (1)
  - DRUG SCREEN POSITIVE [None]
